FAERS Safety Report 5780290-3 (Version None)
Quarter: 2008Q2

REPORT INFORMATION
  Report Type: 
  Country: None (occurrence: None)
  Receive Date: 20080620
  Receipt Date: 20080609
  Transmission Date: 20081010
  Serious: Yes (Life-Threatening)
  Sender: FDA-Public Use
  Company Number: GR-JNJFOC-20080601587

PATIENT
  Age: 9 Year
  Sex: Female
  Weight: 41.5 kg

DRUGS (5)
  1. REMICADE [Suspect]
     Indication: CROHN'S DISEASE
     Dosage: 1ST INFUSION
     Route: 042
  2. PENTASA [Concomitant]
     Indication: CROHN'S DISEASE
     Route: 048
  3. ANTIHISTAMINES [Concomitant]
  4. EMTHEXATE [Concomitant]
     Indication: CROHN'S DISEASE
     Route: 058
  5. FILLICIN [Concomitant]
     Indication: CROHN'S DISEASE
     Route: 048

REACTIONS (2)
  - ANAPHYLACTOID REACTION [None]
  - INFUSION RELATED REACTION [None]
